FAERS Safety Report 5168501-9 (Version None)
Quarter: 2006Q4

REPORT INFORMATION
  Report Type: 
  Country: None (occurrence: None)
  Receive Date: 20061201
  Receipt Date: 20061122
  Transmission Date: 20070319
  Serious: Yes (Other)
  Sender: FDA-Public Use
  Company Number: 2006125851

PATIENT
  Age: 42 Year
  Sex: Female

DRUGS (3)
  1. EXUBERA [Suspect]
     Indication: DIABETES MELLITUS INSULIN-DEPENDENT
     Dosage: APPROX. 33 IU (3 IN 1 D), ORAL
     Route: 048
     Dates: start: 20060518, end: 20060101
  2. LANTUS [Concomitant]
  3. IRBESARTAN [Concomitant]

REACTIONS (5)
  - ANTI-INSULIN ANTIBODY POSITIVE [None]
  - DEVICE FAILURE [None]
  - DRUG INEFFECTIVE [None]
  - HYPERGLYCAEMIA [None]
  - PHARMACEUTICAL PRODUCT COMPLAINT [None]
